FAERS Safety Report 10770214 (Version 1)
Quarter: 2015Q1

REPORT INFORMATION
  Report Type: Spontaneous
  Country: US (occurrence: None)
  Receive Date: 20150204
  Receipt Date: 20150204
  Transmission Date: 20150721
  Serious: Yes (Death)
  Sender: FDA-Public Use
  Company Number: 2729281

PATIENT
  Age: 54 Year
  Sex: Male

DRUGS (6)
  1. ZOLPIDEM [Suspect]
     Active Substance: ZOLPIDEM\ZOLPIDEM TARTRATE
     Dates: start: 2013, end: 2013
  2. CODEINE [Suspect]
     Active Substance: CODEINE
     Dates: start: 2013, end: 2013
  3. CODEINE [Suspect]
     Active Substance: CODEINE
     Dates: start: 2013, end: 2013
  4. PROMETHAZINE HYDROCHLORIDE. [Suspect]
     Active Substance: PROMETHAZINE HYDROCHLORIDE
     Dates: start: 2013, end: 2013
  5. CLONAZEPAM. [Suspect]
     Active Substance: CLONAZEPAM
     Dates: start: 2013, end: 2013
  6. PHENYTOIN. [Suspect]
     Active Substance: PHENYTOIN
     Dates: start: 2013, end: 2013

REACTIONS (2)
  - Poisoning [None]
  - Drug abuse [None]

NARRATIVE: CASE EVENT DATE: 2013
